FAERS Safety Report 9619670 (Version 4)
Quarter: 2013Q4

REPORT INFORMATION
  Report Type: Spontaneous
  Country: US (occurrence: US)
  Receive Date: 20131014
  Receipt Date: 20131114
  Transmission Date: 20140711
  Serious: Yes (Hospitalization, Other)
  Sender: FDA-Public Use
  Company Number: US-PFIZER INC-2012328969

PATIENT
  Age: 52 Year
  Sex: Male
  Weight: 104.76 kg

DRUGS (3)
  1. ENBREL [Suspect]
     Indication: RHEUMATOID ARTHRITIS
     Dosage: 50 MG, QWK
     Route: 058
     Dates: start: 20091027, end: 20121114
  2. METHOTREXATE SODIUM [Suspect]
     Dosage: UNK
  3. PREDNISON [Concomitant]
     Dosage: UNK

REACTIONS (5)
  - Glomerulonephropathy [Unknown]
  - Nephrotic syndrome [Not Recovered/Not Resolved]
  - Oedema peripheral [Not Recovered/Not Resolved]
  - Proteinuria [Not Recovered/Not Resolved]
  - Arthralgia [Unknown]
